FAERS Safety Report 24066987 (Version 1)
Quarter: 2024Q3

REPORT INFORMATION
  Report Type: Spontaneous
  Country: DE (occurrence: DE)
  Receive Date: 20240709
  Receipt Date: 20240709
  Transmission Date: 20241016
  Serious: Yes (Life-Threatening, Hospitalization)
  Sender: PFIZER
  Company Number: DE-TAKEDA-2014TEU004133

PATIENT
  Age: 64 Year
  Sex: Male
  Weight: 70 kg

DRUGS (5)
  1. ADCETRIS [Suspect]
     Active Substance: BRENTUXIMAB VEDOTIN
     Dosage: 1.8 MG/KG, Q21D
     Route: 042
     Dates: start: 20140206
  2. DIGOXIN [Concomitant]
     Active Substance: DIGOXIN
     Indication: Tachycardia
     Dosage: UNK
  3. DIMETHINDENE [Concomitant]
     Active Substance: DIMETHINDENE
  4. PREDNISOLONE [Concomitant]
     Active Substance: PREDNISOLONE
  5. RANITIDINE [Concomitant]
     Active Substance: RANITIDINE

REACTIONS (9)
  - Systemic inflammatory response syndrome [Recovered/Resolved]
  - Cytokine release syndrome [Recovered/Resolved]
  - Cardiovascular insufficiency [Recovered/Resolved]
  - Pyrexia [Recovered/Resolved]
  - Shock [Recovered/Resolved]
  - Chills [Recovered/Resolved]
  - Fall [Recovered/Resolved]
  - Confusional state [Recovered/Resolved]
  - Dyspnoea [Unknown]

NARRATIVE: CASE EVENT DATE: 20140206
